FAERS Safety Report 8097459-8 (Version None)
Quarter: 2012Q1

REPORT INFORMATION
  Report Type: 
  Country: None (occurrence: None)
  Receive Date: 20120128
  Receipt Date: 20110708
  Transmission Date: 20120608
  Serious: No
  Sender: FDA-Public Use
  Company Number: US-ABBOTT-11P-163-0837162-00

PATIENT
  Age: 57 Year
  Sex: Male

DRUGS (5)
  1. HUMIRA [Suspect]
     Dosage: DOSE INCREASED TO WEEKLY
  2. SULFASALAZINE [Concomitant]
     Indication: ANTIINFLAMMATORY THERAPY
  3. HUMIRA [Suspect]
     Indication: PSORIATIC ARTHROPATHY
     Dates: start: 20110401
  4. METFORMIN HCL [Concomitant]
     Indication: DIABETES MELLITUS
  5. UNKNOWN MEDICATIONS [Concomitant]
     Indication: PRODUCT USED FOR UNKNOWN INDICATION

REACTIONS (6)
  - RASH ERYTHEMATOUS [None]
  - BUTTERFLY RASH [None]
  - CHROMATURIA [None]
  - RASH [None]
  - DECREASED APPETITE [None]
  - FEAR [None]
